FAERS Safety Report 9770669 (Version 2)
Quarter: 2014Q1

REPORT INFORMATION
  Report Type: Spontaneous
  Country: US (occurrence: US)
  Receive Date: 20131218
  Receipt Date: 20140204
  Transmission Date: 20141002
  Serious: Yes (Death)
  Sender: FDA-Public Use
  Company Number: US-GLAXOSMITHKLINE-A1054001A

PATIENT
  Age: 69 Year
  Sex: Male
  Weight: 70.3 kg

DRUGS (1)
  1. MEKINIST [Suspect]
     Indication: NEOPLASM MALIGNANT
     Dosage: 2MG UNKNOWN
     Route: 065
     Dates: start: 20130910

REACTIONS (1)
  - Disease progression [Fatal]
